FAERS Safety Report 7811058-1 (Version None)
Quarter: 2011Q4

REPORT INFORMATION
  Report Type: 
  Country: None (occurrence: None)
  Receive Date: 20111013
  Receipt Date: 20110930
  Transmission Date: 20120403
  Serious: Yes (Life-Threatening, Hospitalization)
  Sender: FDA-Public Use
  Company Number: US-BAYER-2011-030921

PATIENT
  Age: 48 Year
  Sex: Female
  Weight: 77.098 kg

DRUGS (6)
  1. DROSPIRENONE AND ETHINYL ESTRADIOL [Suspect]
     Indication: CONTRACEPTION
     Dosage: UNK
     Route: 048
     Dates: start: 20080101, end: 20090101
  2. ACYCLOVIR [Concomitant]
     Dosage: UNK
     Dates: start: 20030101, end: 20090101
  3. YASMIN [Suspect]
     Indication: CONTRACEPTION
     Dosage: UNK
     Route: 048
     Dates: start: 20030101, end: 20080101
  4. MALARONE [Concomitant]
  5. ASPIRIN [Concomitant]
  6. SIMVASTATIN [Concomitant]
     Indication: HYPERLIPIDAEMIA

REACTIONS (7)
  - GENERAL PHYSICAL HEALTH DETERIORATION [None]
  - CEREBROVASCULAR ACCIDENT [None]
  - CEREBROVASCULAR DISORDER [None]
  - ANXIETY [None]
  - PAIN [None]
  - ANHEDONIA [None]
  - INJURY [None]
